FAERS Safety Report 17783232 (Version 4)
Quarter: 2020Q3

REPORT INFORMATION
  Report Type: Spontaneous
  Country: US (occurrence: US)
  Receive Date: 20200514
  Receipt Date: 20200717
  Transmission Date: 20201102
  Serious: No
  Sender: FDA-Public Use
  Company Number: US-PFIZER INC-2020190945

PATIENT
  Age: 59 Year
  Sex: Female

DRUGS (4)
  1. LYRICA [Suspect]
     Active Substance: PREGABALIN
     Dosage: 20 MG, TWICE DAILY
  2. LYRICA [Suspect]
     Active Substance: PREGABALIN
     Dosage: UNK, ONCE A DAY
  3. LYRICA [Suspect]
     Active Substance: PREGABALIN
     Dosage: UNK, ONCE A DAY
  4. LYRICA [Suspect]
     Active Substance: PREGABALIN
     Dosage: 75 MG, TWICE DAILY

REACTIONS (4)
  - Pain [Unknown]
  - Intentional product misuse [Unknown]
  - Feeling abnormal [Unknown]
  - Gait disturbance [Unknown]
